FAERS Safety Report 7620887-9 (Version None)
Quarter: 2011Q3

REPORT INFORMATION
  Report Type: 
  Country: None (occurrence: None)
  Receive Date: 20110719
  Receipt Date: 20110712
  Transmission Date: 20111222
  Serious: Yes (Other)
  Sender: FDA-Public Use
  Company Number: US-PFIZER INC-2011157832

PATIENT
  Sex: Male
  Weight: 56.7 kg

DRUGS (2)
  1. DETROL [Suspect]
  2. ZYVOX [Suspect]
     Indication: INFECTION
     Dosage: UNK

REACTIONS (10)
  - PANIC ATTACK [None]
  - BLINDNESS UNILATERAL [None]
  - CONVULSION [None]
  - DIZZINESS [None]
  - EYE DISORDER [None]
  - ABNORMAL BEHAVIOUR [None]
  - MALAISE [None]
  - ANGER [None]
  - SCREAMING [None]
  - EYE SWELLING [None]
